FAERS Safety Report 8541154-5 (Version None)
Quarter: 2012Q2

REPORT INFORMATION
  Report Type: 
  Country: None (occurrence: None)
  Receive Date: 20120412
  Receipt Date: 20090720
  Transmission Date: 20120825
  Serious: Yes (Other)
  Sender: FDA-Public Use
  Company Number: PHEH2008US10479

PATIENT
  Sex: Female

DRUGS (2)
  1. ZOMETA [Suspect]
     Dosage: INFUSION
  2. AREDIA [Suspect]
     Indication: MULTIPLE MYELOMA
     Dosage: EVERY MONTH, INFUSION

REACTIONS (3)
  - INFECTION [None]
  - TOOTH EXTRACTION [None]
  - OSTEONECROSIS [None]
